FAERS Safety Report 9980678 (Version 1)
Quarter: 2014Q1

REPORT INFORMATION
  Report Type: Spontaneous
  Country: US (occurrence: US)
  Receive Date: 20140307
  Receipt Date: 20140307
  Transmission Date: 20141002
  Serious: Yes (Hospitalization)
  Sender: FDA-Public Use
  Company Number: US-AMGEN-USASP2014015870

PATIENT
  Age: 59 Year
  Sex: Female
  Weight: 56.68 kg

DRUGS (1)
  1. ENBREL [Suspect]
     Indication: RHEUMATOID ARTHRITIS
     Dosage: 50 MG, QWK
     Route: 058

REACTIONS (3)
  - Pancreatitis [Recovered/Resolved]
  - Abdominal pain [Not Recovered/Not Resolved]
  - Clostridium difficile infection [Recovered/Resolved]
